FAERS Safety Report 6558276-0 (Version None)
Quarter: 2010Q1

REPORT INFORMATION
  Report Type: 
  Country: None (occurrence: None)
  Receive Date: 20100128
  Receipt Date: 20100128
  Transmission Date: 20100710
  Serious: No
  Sender: FDA-Public Use
  Company Number: None

PATIENT
  Sex: Female
  Weight: 60.782 kg

DRUGS (2)
  1. METROGEL [Suspect]
     Indication: ROSACEA
     Dosage: SMALL AMOUNT 2X DAILY
     Dates: start: 20100105
  2. METROGEL [Suspect]
     Indication: ROSACEA
     Dosage: SMALL AMOUNT 2X DAILY
     Dates: start: 20100106

REACTIONS (2)
  - HYPOAESTHESIA [None]
  - OEDEMA PERIPHERAL [None]
